FAERS Safety Report 10758406 (Version 1)
Quarter: 2015Q1

REPORT INFORMATION
  Report Type: Spontaneous
  Country: US (occurrence: None)
  Receive Date: 20150202
  Receipt Date: 20150202
  Transmission Date: 20150721
  Serious: Yes (Hospitalization, Other)
  Sender: FDA-Public Use
  Company Number: None

PATIENT
  Age: 35 Year
  Sex: Female
  Weight: 56 kg

DRUGS (1)
  1. VENOFER [Suspect]
     Active Substance: IRON SUCROSE
     Indication: IRON DEFICIENCY
     Dosage: INTO A VEIN
     Dates: start: 20130612

REACTIONS (8)
  - Amnesia [None]
  - Dizziness [None]
  - Anxiety [None]
  - Paralysis [None]
  - Seizure [None]
  - Dyspnoea [None]
  - Exposure during pregnancy [None]
  - Aphasia [None]

NARRATIVE: CASE EVENT DATE: 20131206
